FAERS Safety Report 17028214 (Version 1)
Quarter: 2019Q4

REPORT INFORMATION
  Report Type: Spontaneous
  Country: US (occurrence: US)
  Receive Date: 20191113
  Receipt Date: 20191113
  Transmission Date: 20200122
  Serious: No
  Sender: FDA-Public Use
  Company Number: US-009507513-1911USA001864

PATIENT
  Age: 35 Year
  Sex: Female

DRUGS (4)
  1. PUREGON PEN [DEVICE] [Suspect]
     Active Substance: DEVICE
  2. FOLLISTIM AQ [Suspect]
     Active Substance: FOLLITROPIN
     Indication: INFERTILITY FEMALE
     Dosage: 150 DOSAGE FORM, QD
     Route: 058
     Dates: start: 20190130
  3. XANAX [Concomitant]
     Active Substance: ALPRAZOLAM
  4. VITAMIN D (UNSPECIFIED) [Concomitant]
     Active Substance: VITAMIN D NOS

REACTIONS (1)
  - Fatigue [Unknown]

NARRATIVE: CASE EVENT DATE: 20191104
